FAERS Safety Report 23963688 (Version 2)
Quarter: 2025Q1

REPORT INFORMATION
  Report Type: Report from Study
  Country: CN (occurrence: CN)
  Receive Date: 20240611
  Receipt Date: 20250113
  Transmission Date: 20250408
  Serious: Yes (Other)
  Sender: PFIZER
  Company Number: CN-TAKEDA-2023TUS086177

PATIENT
  Age: 67 Year
  Sex: Male
  Weight: 67.5 kg

DRUGS (11)
  1. BRENTUXIMAB VEDOTIN [Suspect]
     Active Substance: BRENTUXIMAB VEDOTIN
     Indication: Anaplastic large cell lymphoma T- and null-cell types
     Dosage: 100 MILLIGRAM, Q3WEEKS
     Route: 041
     Dates: start: 20230714
  2. AMLODIPINE BESYLATE [Concomitant]
     Active Substance: AMLODIPINE BESYLATE
     Indication: Hypertension
     Dosage: 5 MILLIGRAM, QD
     Route: 048
     Dates: start: 20230807
  3. RABEPRAZOLE SODIUM [Concomitant]
     Active Substance: RABEPRAZOLE SODIUM
     Dosage: 20 MILLIGRAM, QD(ENTERIC COATED TABLET)
     Route: 048
     Dates: start: 20230506
  4. PREDNISONE ACETATE [Concomitant]
     Active Substance: PREDNISONE ACETATE
     Dosage: 100 MILLIGRAM, QD
     Route: 048
     Dates: start: 20230321
  5. POTASSIUM CHLORIDE [Concomitant]
     Active Substance: POTASSIUM CHLORIDE
     Dosage: 0.5 GRAM, TID
     Route: 048
     Dates: start: 20230414
  6. ACYCLOVIR [Concomitant]
     Active Substance: ACYCLOVIR
     Dosage: 0.2 GRAM, BID
     Route: 048
     Dates: start: 20230321
  7. CALCIUM CARBONATE [Concomitant]
     Active Substance: CALCIUM CARBONATE
     Dosage: 0.3 GRAM, QD
     Route: 048
     Dates: start: 20230414
  8. METHYLCOBALAMIN [Concomitant]
     Active Substance: METHYLCOBALAMIN
     Dosage: 0.5 MILLIGRAM, QD
     Route: 048
     Dates: start: 20230714
  9. COMPOUND GLUTAMINE [ATRACTYLODES MACROCEPHALA RHIZOME;GLYCYRRHIZA SPP. [Concomitant]
     Route: 048
     Dates: start: 20230809
  10. UREMIC CLEARANCE [Concomitant]
     Dosage: 5 GRAM, BID
     Route: 048
     Dates: start: 20230809
  11. FEBUXOSTAT [Concomitant]
     Active Substance: FEBUXOSTAT
     Dosage: 40 MILLIGRAM, QD
     Route: 048
     Dates: start: 20230809

REACTIONS (1)
  - Renal failure [Unknown]

NARRATIVE: CASE EVENT DATE: 20231221
